FAERS Safety Report 23101103 (Version 1)
Quarter: 2023Q4

REPORT INFORMATION
  Report Type: Spontaneous
  Country: US (occurrence: None)
  Receive Date: 20231022
  Receipt Date: 20231022
  Transmission Date: 20240109
  Serious: Yes (Life-Threatening, Hospitalization)
  Sender: FDA-Public Use
  Company Number: None

PATIENT
  Age: 78 Year
  Sex: Male

DRUGS (3)
  1. APIXABAN [Suspect]
     Active Substance: APIXABAN
     Dosage: FREQUENCY : TWICE A DAY;?
     Route: 048
     Dates: start: 20150101
  2. CLOPIDOGREL BISULFATE [Suspect]
     Active Substance: CLOPIDOGREL BISULFATE
     Dosage: FREQUENCY : DAILY;?
     Route: 048
     Dates: start: 20230127
  3. ASPIRIN PAIN RELIVER [Suspect]
     Active Substance: ASPIRIN

REACTIONS (9)
  - Gastrointestinal haemorrhage [None]
  - Dyspnoea [None]
  - Fatigue [None]
  - Anaemia of chronic disease [None]
  - Chronic gastritis [None]
  - Diverticulum [None]
  - Large intestine polyp [None]
  - Off label use [None]
  - Blood creatinine increased [None]

NARRATIVE: CASE EVENT DATE: 20230301
